FAERS Safety Report 5813338-8 (Version None)
Quarter: 2008Q3

REPORT INFORMATION
  Report Type: 
  Country: None (occurrence: None)
  Receive Date: 20080717
  Receipt Date: 20080714
  Transmission Date: 20090109
  Serious: Yes (Other)
  Sender: FDA-Public Use
  Company Number: JP-BRISTOL-MYERS SQUIBB COMPANY-12463188

PATIENT
  Age: 65 Year
  Sex: Male

DRUGS (5)
  1. KENACORT [Suspect]
     Indication: MACULAR OEDEMA
     Route: 031
  2. KENACORT [Suspect]
     Indication: RETINAL DETACHMENT
     Route: 031
  3. ADONA [Concomitant]
     Route: 048
     Dates: start: 20030114
  4. SULBENICILLIN SODIUM [Concomitant]
     Route: 031
     Dates: start: 20030109
  5. FLUMETHOLON [Concomitant]
     Route: 031
     Dates: start: 20030109

REACTIONS (1)
  - ENDOPHTHALMITIS [None]
